FAERS Safety Report 13914147 (Version 1)
Quarter: 2017Q3

REPORT INFORMATION
  Report Type: Spontaneous
  Country: US (occurrence: US)
  Receive Date: 20170828
  Receipt Date: 20170828
  Transmission Date: 20171127
  Serious: No
  Sender: FDA-Public Use
  Company Number: US-ROCHE-1131759

PATIENT
  Sex: Female
  Weight: 43.7 kg

DRUGS (4)
  1. DEXEDRINE [Concomitant]
     Active Substance: DEXTROAMPHETAMINE SULFATE
  2. NUTROPIN [Suspect]
     Active Substance: SOMATROPIN
     Indication: GROWTH HORMONE DEFICIENCY
     Route: 065
  3. NUTROPIN [Suspect]
     Active Substance: SOMATROPIN
     Indication: NOONAN SYNDROME
     Dosage: 0.35 MG/KG/WEEK
     Route: 058
  4. NUTROPIN [Suspect]
     Active Substance: SOMATROPIN
     Dosage: 0.33 MG/KG/WEEK
     Route: 058

REACTIONS (1)
  - Arthralgia [Recovered/Resolved]
